FAERS Safety Report 8275772-9 (Version None)
Quarter: 2012Q2

REPORT INFORMATION
  Report Type: 
  Country: None (occurrence: None)
  Receive Date: 20120410
  Receipt Date: 20120410
  Transmission Date: 20120825
  Serious: Yes (Life-Threatening, Hospitalization)
  Sender: FDA-Public Use
  Company Number: None

PATIENT
  Age: 28 Year
  Sex: Male
  Weight: 79.5 kg

DRUGS (1)
  1. ZIPRASIDONE HYDROCHLORIDE [Suspect]
     Indication: SCHIZOPHRENIA
     Dosage: 80 MG BID PO
     Route: 048
     Dates: start: 20111011, end: 20111102

REACTIONS (11)
  - AUTONOMIC NERVOUS SYSTEM IMBALANCE [None]
  - HYPERHIDROSIS [None]
  - MENTAL STATUS CHANGES [None]
  - COGWHEEL RIGIDITY [None]
  - HEADACHE [None]
  - BLOOD PRESSURE INCREASED [None]
  - CONFUSIONAL STATE [None]
  - POLYDIPSIA [None]
  - DYSTONIA [None]
  - DYSPNOEA [None]
  - URINE OUTPUT INCREASED [None]
